FAERS Safety Report 10985190 (Version 1)
Quarter: 2015Q2

REPORT INFORMATION
  Report Type: Spontaneous
  Country: US (occurrence: None)
  Receive Date: 20150403
  Receipt Date: 20150403
  Transmission Date: 20150821
  Serious: Yes (Other)
  Sender: FDA-Public Use
  Company Number: None

PATIENT
  Age: 54 Year
  Sex: Male

DRUGS (4)
  1. RIBAVIRIN 200 MG ZYDUS PHARMACEUTICALS [Suspect]
     Active Substance: RIBAVIRIN
     Indication: CHRONIC HEPATITIS C
     Route: 048
     Dates: start: 20141110
  2. RIBAVIRIN 200 MG ZYDUS PHARMACEUTICALS [Suspect]
     Active Substance: RIBAVIRIN
     Indication: COMA
     Route: 048
     Dates: start: 20141110
  3. SOVALDI [Suspect]
     Active Substance: SOFOSBUVIR
     Indication: CHRONIC HEPATITIS C
     Route: 048
     Dates: start: 20141110
  4. SOVALDI [Suspect]
     Active Substance: SOFOSBUVIR
     Indication: COMA
     Route: 048
     Dates: start: 20141110

REACTIONS (2)
  - Amnesia [None]
  - Loss of consciousness [None]

NARRATIVE: CASE EVENT DATE: 20150325
